FAERS Safety Report 23579978 (Version 1)
Quarter: 2024Q1

REPORT INFORMATION
  Report Type: Spontaneous
  Country: PT (occurrence: PT)
  Receive Date: 20240229
  Receipt Date: 20240229
  Transmission Date: 20240409
  Serious: Yes (Other)
  Sender: FDA-Public Use
  Company Number: None

PATIENT
  Age: 55 Year
  Sex: Female

DRUGS (6)
  1. LETROZOLE [Suspect]
     Active Substance: LETROZOLE
     Indication: Metastasis
     Route: 065
  2. LETROZOLE [Suspect]
     Active Substance: LETROZOLE
     Route: 065
     Dates: end: 202011
  3. RIBOCICLIB [Suspect]
     Active Substance: RIBOCICLIB
     Indication: Metastasis
     Route: 065
     Dates: end: 202011
  4. RIBOCICLIB [Suspect]
     Active Substance: RIBOCICLIB
     Route: 065
  5. ZOLEDRONIC ACID [Suspect]
     Active Substance: ZOLEDRONIC ACID
     Indication: Metastasis
     Route: 065
  6. ZOLEDRONIC ACID [Suspect]
     Active Substance: ZOLEDRONIC ACID
     Route: 065
     Dates: end: 202011

REACTIONS (1)
  - Hepatotoxicity [Unknown]
